FAERS Safety Report 17440370 (Version 1)
Quarter: 2020Q1

REPORT INFORMATION
  Report Type: Spontaneous
  Country: US (occurrence: US)
  Receive Date: 20200205
  Receipt Date: 20200205
  Transmission Date: 20200409
  Serious: Yes (Death)
  Sender: FDA-Public Use
  Company Number: None

PATIENT
  Age: 89 Year
  Sex: Female

DRUGS (18)
  1. FREESYLE [Concomitant]
  2. METOPROLOL TARTRATE. [Concomitant]
     Active Substance: METOPROLOL TARTRATE
  3. PRANDIN [Concomitant]
     Active Substance: REPAGLINIDE
  4. PROAIR HFA [Concomitant]
     Active Substance: ALBUTEROL SULFATE
  5. BOTOX [Suspect]
     Active Substance: ONABOTULINUMTOXINA
     Indication: PRODUCT USED FOR UNKNOWN INDICATION
     Dosage: ?          OTHER FREQUENCY:EVERY 3 MONTH;?
     Route: 030
     Dates: start: 201810, end: 20200127
  6. PLAVIX [Concomitant]
     Active Substance: CLOPIDOGREL BISULFATE
  7. ISOSORB MONO TABLET [Concomitant]
  8. NEVANAC [Concomitant]
     Active Substance: NEPAFENAC
  9. CHERATUSSIN [Concomitant]
     Active Substance: AMMONIUM CHLORIDE\DEXTROMETHORPHAN\SODIUM CITRATE
  10. HYDROCO/APAP [Concomitant]
     Active Substance: ACETAMINOPHEN\HYDROCODONE
  11. VIGAMOX [Concomitant]
     Active Substance: MOXIFLOXACIN HYDROCHLORIDE
  12. LEVAQUIN [Concomitant]
     Active Substance: LEVOFLOXACIN
  13. VYTORIN [Concomitant]
     Active Substance: EZETIMIBE\SIMVASTATIN
  14. CIPRODEX [Concomitant]
     Active Substance: CIPROFLOXACIN HYDROCHLORIDE\DEXAMETHASONE
  15. CLARITHROMYC [Concomitant]
  16. FLOVENT HFA AER [Concomitant]
  17. JANUVIA [Concomitant]
     Active Substance: SITAGLIPTIN PHOSPHATE
  18. METHOCARBAM [Concomitant]
     Active Substance: METHOCARBAMOL

REACTIONS (1)
  - Death [None]

NARRATIVE: CASE EVENT DATE: 20200127
